FAERS Safety Report 6269522-5 (Version None)
Quarter: 2009Q3

REPORT INFORMATION
  Report Type: 
  Country: None (occurrence: None)
  Receive Date: 20090715
  Receipt Date: 20090309
  Transmission Date: 20100115
  Serious: No
  Sender: FDA-Public Use
  Company Number: US-TYCO HEALTHCARE/MALLINCKRODT-T200900632

PATIENT
  Sex: Female
  Weight: 61.224 kg

DRUGS (4)
  1. OXYCODONE HCL [Suspect]
     Indication: BACK PAIN
     Dosage: 15 MG, ONE TAB 2-3X DAILY
     Route: 048
     Dates: start: 20090205, end: 20090211
  2. LYRICA [Concomitant]
     Indication: PAIN
     Dosage: 500 MG, TID
     Route: 048
     Dates: start: 20080101
  3. FENTANYL-100 [Concomitant]
     Indication: PAIN
     Dosage: UNK
     Route: 062
     Dates: start: 20080101
  4. OXYCODONE [Concomitant]
     Indication: PAIN
     Dosage: 15 MG, 2-3 QD
     Route: 048
     Dates: start: 20081201

REACTIONS (4)
  - FEELING HOT [None]
  - LETHARGY [None]
  - NAUSEA [None]
  - VOMITING [None]
